FAERS Safety Report 8009662-3 (Version None)
Quarter: 2011Q4

REPORT INFORMATION
  Report Type: 
  Country: None (occurrence: None)
  Receive Date: 20111228
  Receipt Date: 20111220
  Transmission Date: 20120403
  Serious: No
  Sender: FDA-Public Use
  Company Number: US-BIOGENIDEC-2011BI012222

PATIENT
  Sex: Female

DRUGS (2)
  1. AVONEX [Concomitant]
     Indication: MULTIPLE SCLEROSIS
     Route: 030
  2. TYSABRI [Suspect]
     Indication: MULTIPLE SCLEROSIS
     Route: 042
     Dates: start: 20080709, end: 20110812

REACTIONS (23)
  - FALL [None]
  - CHEST INJURY [None]
  - ARTHRALGIA [None]
  - DRUG INEFFECTIVE [None]
  - BACK DISORDER [None]
  - GROIN PAIN [None]
  - CYSTITIS [None]
  - HEADACHE [None]
  - CONTUSION [None]
  - VERTIGO [None]
  - VITAMIN B12 DECREASED [None]
  - POST-TRAUMATIC NECK SYNDROME [None]
  - PAIN IN EXTREMITY [None]
  - FLATULENCE [None]
  - MULTIPLE SCLEROSIS RELAPSE [None]
  - GAIT DISTURBANCE [None]
  - INFLUENZA [None]
  - CONSTIPATION [None]
  - HEAD INJURY [None]
  - SPINAL DISORDER [None]
  - DYSPEPSIA [None]
  - ROAD TRAFFIC ACCIDENT [None]
  - FATIGUE [None]
